FAERS Safety Report 4879181-1 (Version None)
Quarter: 2006Q1

REPORT INFORMATION
  Report Type: 
  Country: None (occurrence: None)
  Receive Date: 20060112
  Receipt Date: 20060103
  Transmission Date: 20060701
  Serious: Yes (Hospitalization)
  Sender: FDA-Public Use
  Company Number: US-BRISTOL-MYERS SQUIBB COMPANY-13239272

PATIENT
  Age: 24 Year
  Sex: Male

DRUGS (1)
  1. MAXIPIME [Suspect]
     Indication: OSTEOMYELITIS
     Dosage: PATIENT WAS ^SELF ADMINISTERING^
     Route: 042
     Dates: start: 20051101

REACTIONS (3)
  - DYSPNOEA [None]
  - NEUTROPENIA [None]
  - PYREXIA [None]
